FAERS Safety Report 4685994-1 (Version None)
Quarter: 2005Q2

REPORT INFORMATION
  Report Type: 
  Country: None (occurrence: None)
  Receive Date: 20050609
  Receipt Date: 19961017
  Transmission Date: 20051028
  Serious: Yes (Hospitalization, Other)
  Sender: FDA-Public Use
  Company Number: SE-NOVOPROD-104644

PATIENT
  Age: 15 Year
  Sex: Male

DRUGS (2)
  1. NORDITROPIN SIMPLEXX [Suspect]
     Indication: GROWTH HORMONE DEFICIENCY
     Route: 058
     Dates: start: 19911025, end: 19961001
  2. LEVAXIN [Concomitant]

REACTIONS (6)
  - EMPYEMA [None]
  - HUMERUS FRACTURE [None]
  - IMPAIRED HEALING [None]
  - LYMPHOEDEMA [None]
  - LYMPHOMA [None]
  - PULMONARY FUNCTION TEST DECREASED [None]
